FAERS Safety Report 14653026 (Version 1)
Quarter: 2018Q1

REPORT INFORMATION
  Report Type: Spontaneous
  Country: IT (occurrence: IT)
  Receive Date: 20180319
  Receipt Date: 20180319
  Transmission Date: 20180509
  Serious: Yes (Other)
  Sender: FDA-Public Use
  Company Number: IT-ASTRAZENECA-2018SE32802

PATIENT
  Age: 76 Year
  Sex: Female

DRUGS (8)
  1. MICARDIS [Concomitant]
     Active Substance: TELMISARTAN
  2. FULVESTRANT. [Suspect]
     Active Substance: FULVESTRANT
     Indication: BREAST CANCER METASTATIC
     Dosage: DOSE UNKNOWN
     Route: 030
  3. EUTIROX [Concomitant]
     Active Substance: LEVOTHYROXINE SODIUM
  4. IBRANCE [Suspect]
     Active Substance: PALBOCICLIB
     Indication: BREAST CANCER METASTATIC
     Dosage: 125 MG SIX CYCLES
     Route: 048
     Dates: start: 20170719
  5. SERENASE [Concomitant]
     Active Substance: HALOPERIDOL
  6. ZYLORIC [Concomitant]
     Active Substance: ALLOPURINOL
  7. CONGESCOR [Concomitant]
     Active Substance: BISOPROLOL
  8. LANOXIN [Concomitant]
     Active Substance: DIGOXIN

REACTIONS (1)
  - Malignant neoplasm progression [Unknown]
